FAERS Safety Report 8333034-5 (Version None)
Quarter: 2012Q2

REPORT INFORMATION
  Report Type: 
  Country: None (occurrence: None)
  Receive Date: 20120503
  Receipt Date: 20120424
  Transmission Date: 20120825
  Serious: Yes (Other)
  Sender: FDA-Public Use
  Company Number: SE-BRISTOL-MYERS SQUIBB COMPANY-16463960

PATIENT

DRUGS (1)
  1. REYATAZ [Suspect]

REACTIONS (2)
  - MUSCLE ATROPHY [None]
  - MUSCULAR WEAKNESS [None]
